FAERS Safety Report 6012248-3 (Version None)
Quarter: 2008Q4

REPORT INFORMATION
  Report Type: 
  Country: None (occurrence: None)
  Receive Date: 20081216
  Receipt Date: 20080116
  Transmission Date: 20090506
  Serious: Yes (Disabling)
  Sender: FDA-Public Use
  Company Number: US-WYE-H02190408

PATIENT
  Age: 55 Year
  Sex: Male
  Weight: 95.34 kg

DRUGS (3)
  1. EFFEXOR XR [Suspect]
     Indication: DEPRESSION
     Dosage: 187.5 MG 1X PER 1 DAY, ORAL
     Route: 048
     Dates: start: 20050227, end: 20080116
  2. CAMPRAL [Concomitant]
  3. ATIVAN [Concomitant]

REACTIONS (1)
  - TENDON RUPTURE [None]
